FAERS Safety Report 7029824-1 (Version None)
Quarter: 2010Q4

REPORT INFORMATION
  Report Type: 
  Country: None (occurrence: None)
  Receive Date: 20101006
  Receipt Date: 20100927
  Transmission Date: 20110411
  Serious: Yes (Hospitalization)
  Sender: FDA-Public Use
  Company Number: US-BIOGENIDEC-2009BI041836

PATIENT
  Age: 69 Year
  Sex: Female

DRUGS (2)
  1. AVONEX [Suspect]
     Indication: MULTIPLE SCLEROSIS
     Route: 030
     Dates: end: 20091201
  2. AVONEX [Suspect]
     Route: 030
     Dates: start: 20020515

REACTIONS (7)
  - COMA [None]
  - DEHYDRATION [None]
  - MENTAL STATUS CHANGES [None]
  - PNEUMONIA [None]
  - RENAL FAILURE [None]
  - RESPIRATORY ARREST [None]
  - VOMITING [None]
